FAERS Safety Report 4343596-0 (Version None)
Quarter: 2004Q2

REPORT INFORMATION
  Report Type: 
  Country: None (occurrence: None)
  Receive Date: 20040419
  Receipt Date: 20040401
  Transmission Date: 20050107
  Serious: Yes (Other)
  Sender: FDA-Public Use
  Company Number: 701494

PATIENT
  Age: 29 Year
  Sex: Male
  Weight: 95.2554 kg

DRUGS (3)
  1. AMEVIVE [Suspect]
     Indication: PSORIASIS
     Dosage: 15 MG QW IM
     Route: 030
     Dates: start: 20030319, end: 20030101
  2. AMEVIVE [Suspect]
     Indication: PSORIASIS
     Dosage: 15 MG QW IM
     Route: 030
  3. AMEVIVE [Suspect]
     Indication: PSORIASIS
     Dosage: 15 MG QMONTH  IM
     Route: 030

REACTIONS (2)
  - CD4 LYMPHOCYTES DECREASED [None]
  - PLATELET COUNT DECREASED [None]
